FAERS Safety Report 9645844 (Version 1)
Quarter: 2013Q4

REPORT INFORMATION
  Report Type: Spontaneous
  Country: US (occurrence: None)
  Receive Date: 20131023
  Receipt Date: 20131023
  Transmission Date: 20140711
  Serious: Yes (Hospitalization)
  Sender: FDA-Public Use
  Company Number: UTC-039351

PATIENT
  Age: 45 Year
  Sex: Female
  Weight: 75.9 kg

DRUGS (3)
  1. REMODULIN [Suspect]
     Dosage: 25.92 UG/KG (0.018 UG/KG 1 IN 1 MIN)
     Route: 058
     Dates: start: 20110312
  2. ADCIRCA(TADALAFIL) [Concomitant]
  3. WARFARIN [Concomitant]

REACTIONS (4)
  - Infusion site pain [None]
  - Catheter site discharge [None]
  - Infusion site warmth [None]
  - Infusion site inflammation [None]
